FAERS Safety Report 12374275 (Version 1)
Quarter: 2016Q2

REPORT INFORMATION
  Report Type: Spontaneous
  Country: US (occurrence: None)
  Receive Date: 20160516
  Receipt Date: 20160516
  Transmission Date: 20160815
  Serious: No
  Sender: FDA-Public Use
  Company Number: None

PATIENT
  Age: 69 Year
  Sex: Male

DRUGS (16)
  1. FINASTERIDE. [Concomitant]
     Active Substance: FINASTERIDE
  2. CINNAMON. [Concomitant]
     Active Substance: CINNAMON
  3. LIPITOR [Concomitant]
     Active Substance: ATORVASTATIN CALCIUM
  4. ATENOLOL. [Concomitant]
     Active Substance: ATENOLOL
  5. MULTIVITAMIN [Concomitant]
     Active Substance: VITAMINS
  6. COQ10 [Concomitant]
     Active Substance: UBIDECARENONE
  7. CRESTOR [Concomitant]
     Active Substance: ROSUVASTATIN CALCIUM
  8. VITAMIN C [Concomitant]
     Active Substance: ASCORBIC ACID
  9. ASPIRIN. [Concomitant]
     Active Substance: ASPIRIN
  10. IMITREX [Concomitant]
     Active Substance: SUMATRIPTAN SUCCINATE
  11. FISH OIL [Concomitant]
     Active Substance: FISH OIL
  12. SPRYCEL [Suspect]
     Active Substance: DASATINIB
     Indication: LEUKAEMIA
     Route: 048
     Dates: start: 20130808
  13. GLUCOS/CHOND [Concomitant]
  14. GRAPE SEED [Concomitant]
  15. FLAX SEED [Concomitant]
     Active Substance: FLAX SEED
  16. OXYBUTININ [Concomitant]
     Active Substance: OXYBUTYNIN

REACTIONS (6)
  - Swelling [None]
  - Dyspnoea [None]
  - Chest pain [None]
  - Cough [None]
  - Fatigue [None]
  - Pulmonary oedema [None]

NARRATIVE: CASE EVENT DATE: 201512
